FAERS Safety Report 6612123-7 (Version None)
Quarter: 2010Q1

REPORT INFORMATION
  Report Type: 
  Country: None (occurrence: None)
  Receive Date: 20100303
  Receipt Date: 20100223
  Transmission Date: 20100710
  Serious: Yes (Hospitalization)
  Sender: FDA-Public Use
  Company Number: ES-SP-2010-00828

PATIENT
  Age: 83 Year
  Sex: Male

DRUGS (1)
  1. BCG  THERAPEUTICS [Suspect]
     Indication: BLADDER CANCER
     Route: 043

REACTIONS (11)
  - ABDOMINAL ABSCESS [None]
  - ANAEMIA [None]
  - FISTULA DISCHARGE [None]
  - GENERAL PHYSICAL HEALTH DETERIORATION [None]
  - PANCREATIC ABSCESS [None]
  - PSOAS ABSCESS [None]
  - RENAL FAILURE [None]
  - RETROPERITONEAL ABSCESS [None]
  - SHIFT TO THE LEFT [None]
  - TUBERCULOSIS [None]
  - WEIGHT DECREASED [None]
